FAERS Safety Report 8273396-0 (Version None)
Quarter: 2012Q2

REPORT INFORMATION
  Report Type: 
  Country: None (occurrence: None)
  Receive Date: 20120411
  Receipt Date: 20120409
  Transmission Date: 20120825
  Serious: Yes (Death, Hospitalization)
  Sender: FDA-Public Use
  Company Number: PHHY2012PE029937

PATIENT
  Age: 55 Year
  Sex: Female

DRUGS (4)
  1. SANDOSTATIN LAR [Suspect]
     Indication: ACROMEGALY
     Dosage: 40 MG, QMO
  2. HYDROCORTISONE [Concomitant]
     Dosage: UNK UKN, UNK
  3. LEVOTHYROXINE SODIUM [Concomitant]
     Dosage: UNK UKN, UNK
  4. CABERGOLINE [Concomitant]
     Dosage: UNK UKN, UNK

REACTIONS (4)
  - GASTRIC VOLVULUS [None]
  - INTESTINAL HAEMATOMA [None]
  - MYXOEDEMA COMA [None]
  - INTESTINAL ISCHAEMIA [None]
